FAERS Safety Report 6491400-7 (Version None)
Quarter: 2009Q4

REPORT INFORMATION
  Report Type: 
  Country: None (occurrence: None)
  Receive Date: 20091211
  Receipt Date: 20091207
  Transmission Date: 20100525
  Serious: Yes (Death)
  Sender: FDA-Public Use
  Company Number: DE-SANOFI-AVENTIS-2009SA007536

PATIENT
  Age: 63 Year

DRUGS (6)
  1. OXALIPLATIN [Suspect]
     Indication: COLON CANCER
     Route: 041
     Dates: start: 20070503, end: 20070503
  2. OXALIPLATIN [Suspect]
     Route: 041
     Dates: start: 20071002, end: 20071002
  3. FLUOROURACIL [Suspect]
     Indication: COLON CANCER
     Route: 041
     Dates: start: 20070503, end: 20070503
  4. FLUOROURACIL [Suspect]
     Route: 041
     Dates: start: 20071002, end: 20071002
  5. FOLINIC ACID [Suspect]
     Indication: COLON CANCER
     Route: 041
     Dates: start: 20070503, end: 20070503
  6. FOLINIC ACID [Suspect]
     Route: 041
     Dates: start: 20071002, end: 20071002

REACTIONS (3)
  - ACUTE RESPIRATORY DISTRESS SYNDROME [None]
  - DYSPNOEA [None]
  - RESPIRATORY FAILURE [None]
